FAERS Safety Report 8500326-6 (Version None)
Quarter: 2012Q3

REPORT INFORMATION
  Report Type: 
  Country: None (occurrence: None)
  Receive Date: 20120710
  Receipt Date: 20120703
  Transmission Date: 20120928
  Serious: Yes (Hospitalization)
  Sender: FDA-Public Use
  Company Number: FR-UCBSA-060005

PATIENT
  Age: 70 Year
  Sex: Female

DRUGS (9)
  1. CIMZIA [Suspect]
     Indication: RHEUMATOID ARTHRITIS
     Route: 058
     Dates: start: 20120110, end: 20120601
  2. ACTONEL [Concomitant]
  3. PREDNISONE TAB [Concomitant]
  4. NEXIUM [Concomitant]
  5. INNOVAR [Concomitant]
  6. METHOTREXATE [Concomitant]
  7. PREVISCAN [Concomitant]
  8. FOLIC ACID [Concomitant]
  9. LEVOTHYROXINE SODIUM [Concomitant]

REACTIONS (3)
  - ASTHMA [None]
  - ATRIAL FIBRILLATION [None]
  - DYSPNOEA [None]
